FAERS Safety Report 5722825-2 (Version None)
Quarter: 2008Q2

REPORT INFORMATION
  Report Type: 
  Country: None (occurrence: None)
  Receive Date: 20080429
  Receipt Date: 20080116
  Transmission Date: 20081010
  Serious: No
  Sender: FDA-Public Use
  Company Number: US-ASTRAZENECA-2008UW01272

PATIENT
  Sex: Male

DRUGS (1)
  1. NEXIUM [Suspect]
     Indication: INFLAMMATORY BOWEL DISEASE
     Dates: start: 20070101

REACTIONS (2)
  - ECZEMA [None]
  - INFLAMMATORY BOWEL DISEASE [None]
